FAERS Safety Report 9620676 (Version 2)
Quarter: 2013Q4

REPORT INFORMATION
  Report Type: Spontaneous
  Country: US (occurrence: US)
  Receive Date: 20131015
  Receipt Date: 20131128
  Transmission Date: 20140711
  Serious: Yes (Death, Hospitalization)
  Sender: FDA-Public Use
  Company Number: US-AMGEN-USASP2013071407

PATIENT
  Age: 83 Year
  Sex: Male

DRUGS (6)
  1. PROLIA [Suspect]
     Indication: OSTEOPOROSIS
     Dosage: 60 MG, UNK
     Route: 065
  2. LASIX                              /00032601/ [Concomitant]
     Dosage: 40 MG, UNK
     Route: 048
  3. LISINOPRIL [Concomitant]
     Dosage: 5 MG, UNK
     Route: 048
  4. FOLIC ACID [Concomitant]
     Dosage: 1 MG, UNK
     Route: 048
  5. PREDNISONE [Concomitant]
     Dosage: 5 MG, UNK
     Route: 048
  6. DULERA [Concomitant]
     Dosage: 100/5

REACTIONS (1)
  - Cerebrovascular accident [Fatal]
